FAERS Safety Report 25112901 (Version 1)
Quarter: 2025Q1

REPORT INFORMATION
  Report Type: Spontaneous
  Country: CN (occurrence: CN)
  Receive Date: 20250324
  Receipt Date: 20250324
  Transmission Date: 20250409
  Serious: Yes (Other)
  Sender: ELI LILLY AND COMPANY
  Company Number: CN-ELI_LILLY_AND_COMPANY-CN202503013283

PATIENT
  Age: 57 Year
  Sex: Female
  Weight: 57 kg

DRUGS (10)
  1. HUMALOG MIX75/25 [Suspect]
     Active Substance: INSULIN LISPRO
     Indication: Diabetes mellitus
     Dosage: 20 INTERNATIONAL UNIT, BID
     Route: 058
     Dates: start: 20230925, end: 20240506
  2. HUMALOG MIX75/25 [Suspect]
     Active Substance: INSULIN LISPRO
     Dosage: 22 INTERNATIONAL UNIT, BID
     Route: 058
     Dates: start: 20240507, end: 20250221
  3. HUMALOG MIX75/25 [Suspect]
     Active Substance: INSULIN LISPRO
     Dosage: 25 INTERNATIONAL UNIT, DAILY
     Route: 058
     Dates: start: 20250222, end: 20250304
  4. HUMALOG MIX75/25 [Suspect]
     Active Substance: INSULIN LISPRO
     Dosage: 24 INTERNATIONAL UNIT, DAILY
     Route: 058
     Dates: start: 20250222, end: 20250304
  5. HUMALOG MIX75/25 [Suspect]
     Active Substance: INSULIN LISPRO
     Dosage: 25 INTERNATIONAL UNIT, EACH MORNING
     Route: 058
     Dates: start: 20250305
  6. HUMALOG MIX75/25 [Suspect]
     Active Substance: INSULIN LISPRO
     Dosage: 20 INTERNATIONAL UNIT, EACH EVENING
     Route: 058
     Dates: start: 20250305
  7. METFORMIN HYDROCHLORIDE [Concomitant]
     Active Substance: METFORMIN HYDROCHLORIDE
     Indication: Diabetes mellitus
     Dosage: 0.5 G, BID
     Route: 048
     Dates: start: 20230925, end: 20250311
  8. ALPHA LIPOIC ACID [Concomitant]
     Active Substance: .ALPHA.-LIPOIC ACID
     Indication: Antioxidant therapy
  9. METHYLCOBALAMIN [Concomitant]
     Active Substance: METHYLCOBALAMIN
     Indication: Prophylaxis
  10. ATORVASTATIN [Concomitant]
     Active Substance: ATORVASTATIN
     Indication: Prophylaxis

REACTIONS (18)
  - Deafness neurosensory [Recovering/Resolving]
  - Dry mouth [Recovering/Resolving]
  - Polydipsia [Unknown]
  - Blood glucose fluctuation [Unknown]
  - Diabetic retinopathy [Unknown]
  - Diabetic neuropathy [Unknown]
  - Discomfort [Unknown]
  - Diabetes mellitus inadequate control [Recovering/Resolving]
  - Blood fibrinogen increased [Unknown]
  - Blood glucose increased [Unknown]
  - Blood triglycerides increased [Unknown]
  - Glycated albumin increased [Unknown]
  - Pulmonary mass [Unknown]
  - Gallbladder polyp [Unknown]
  - Hypoaesthesia [Unknown]
  - Vision blurred [Unknown]
  - Chest discomfort [Unknown]
  - Tinnitus [Unknown]

NARRATIVE: CASE EVENT DATE: 20230101
